FAERS Safety Report 5216663-7 (Version None)
Quarter: 2007Q1

REPORT INFORMATION
  Report Type: 
  Country: None (occurrence: None)
  Receive Date: 20061130
  Receipt Date: 20060523
  Transmission Date: 20070707
  Serious: Yes (Hospitalization, Other)
  Sender: FDA-Public Use
  Company Number: US200604004440

PATIENT
  Age: 48 Year
  Sex: Male
  Weight: 104.3 kg

DRUGS (2)
  1. ZYPREXA [Suspect]
     Dosage: SEE IMAGE
     Dates: end: 20010515
  2. ZYPREXA [Suspect]
     Dosage: SEE IMAGE
     Dates: start: 19970722

REACTIONS (3)
  - DIABETES MELLITUS [None]
  - DIABETIC KETOACIDOSIS [None]
  - HYPERTENSION [None]
